FAERS Safety Report 6837156-7 (Version None)
Quarter: 2010Q3

REPORT INFORMATION
  Report Type: 
  Country: None (occurrence: None)
  Receive Date: 20100713
  Receipt Date: 20070511
  Transmission Date: 20110219
  Serious: No
  Sender: FDA-Public Use
  Company Number: US-PFIZER INC-2007036581

PATIENT
  Sex: Female
  Weight: 42.18 kg

DRUGS (8)
  1. CHANTIX [Suspect]
     Indication: SMOKING CESSATION THERAPY
     Route: 048
     Dates: start: 20070101, end: 20070101
  2. COMBIVENT [Concomitant]
  3. PREMARIN [Concomitant]
  4. PRILOSEC [Concomitant]
  5. RANITIDINE [Concomitant]
  6. LIPITOR [Concomitant]
  7. ZETIA [Concomitant]
  8. FLOVENT [Concomitant]

REACTIONS (1)
  - NAUSEA [None]
